FAERS Safety Report 16584857 (Version 1)
Quarter: 2019Q3

REPORT INFORMATION
  Report Type: Spontaneous
  Country: DE (occurrence: DE)
  Receive Date: 20190717
  Receipt Date: 20190717
  Transmission Date: 20191004
  Serious: Yes (Hospitalization, Other)
  Sender: FDA-Public Use
  Company Number: DE-PFIZER INC-2019299580

PATIENT
  Age: 72 Year
  Sex: Female

DRUGS (10)
  1. SIMVASTATIN. [Concomitant]
     Active Substance: SIMVASTATIN
     Dosage: 20 MG, 1X/DAY (0-0-1-0)
  2. PANTOPRAZOLE [Concomitant]
     Active Substance: PANTOPRAZOLE
     Dosage: 40 MG, 1X/DAY (1-0-0-0)
  3. RAMIPRIL. [Concomitant]
     Active Substance: RAMIPRIL
     Dosage: 5 MG, 1X/DAY (0-0-1-0)
  4. METOPROLOL. [Concomitant]
     Active Substance: METOPROLOL
     Dosage: 50 MG, 2X/DAY (1-0-0-1)
  5. AMLODIPINE [Concomitant]
     Active Substance: AMLODIPINE BESYLATE
     Dosage: 5 MG, 1X/DAY (0-0-1-0)
  6. METFORMIN [Concomitant]
     Active Substance: METFORMIN HYDROCHLORIDE
     Dosage: 500 MG, UNK (1-0-0-2)
  7. PACLITAXEL. [Suspect]
     Active Substance: PACLITAXEL
     Dosage: UNK
  8. JANUVIA [Concomitant]
     Active Substance: SITAGLIPTIN PHOSPHATE
     Dosage: 50 MG, 2X/DAY (1-0-0-1)
  9. CLEXANE [Concomitant]
     Active Substance: ENOXAPARIN SODIUM
     Dosage: 0.6 ML, 2X/DAY (1-0-0-1)
  10. HCT [Concomitant]
     Active Substance: HYDROCHLOROTHIAZIDE
     Dosage: 25 MG, 1X/DAY (1-0-0-0)

REACTIONS (6)
  - Chest discomfort [Unknown]
  - Atrial fibrillation [Unknown]
  - Chest pain [Unknown]
  - Dyspnoea [Unknown]
  - Anaemia [Unknown]
  - Pleural effusion [Unknown]
